FAERS Safety Report 8614949-7 (Version None)
Quarter: 2012Q3

REPORT INFORMATION
  Report Type: 
  Country: None (occurrence: None)
  Receive Date: 20120809
  Receipt Date: 20120725
  Transmission Date: 20120928
  Serious: Yes (Death, Other)
  Sender: FDA-Public Use
  Company Number: 2012MA009106

PATIENT
  Age: 28 Year
  Sex: Male
  Weight: 97 kg

DRUGS (5)
  1. TRAMADOL HCL [Suspect]
  2. ETHANOL [Suspect]
  3. CHLORDIAZEPOXIDE [Suspect]
  4. KADIAN [Suspect]
  5. DIAZEPAM [Suspect]

REACTIONS (6)
  - UNRESPONSIVE TO STIMULI [None]
  - INTENTIONAL DRUG MISUSE [None]
  - EXCORIATION [None]
  - PULMONARY OEDEMA [None]
  - TOXICITY TO VARIOUS AGENTS [None]
  - PULMONARY CONGESTION [None]
